FAERS Safety Report 5162133-4 (Version None)
Quarter: 2006Q4

REPORT INFORMATION
  Report Type: 
  Country: None (occurrence: None)
  Receive Date: 20061117
  Receipt Date: 20061101
  Transmission Date: 20070319
  Serious: No
  Sender: FDA-Public Use
  Company Number: 2006-149899-NL

PATIENT
  Sex: Female

DRUGS (1)
  1. ETONOGESTREL [Suspect]
     Dosage: DF,

REACTIONS (2)
  - DRUG EXPOSURE DURING PREGNANCY [None]
  - PREGNANCY WITH IMPLANT CONTRACEPTIVE [None]
